FAERS Safety Report 10246663 (Version 1)
Quarter: 2014Q2

REPORT INFORMATION
  Report Type: Spontaneous
  Country: SE (occurrence: SE)
  Receive Date: 20140619
  Receipt Date: 20140619
  Transmission Date: 20141212
  Serious: Yes (Other)
  Sender: FDA-Public Use
  Company Number: SE-PFIZER INC-2014162229

PATIENT
  Age: 64 Year
  Sex: Male

DRUGS (8)
  1. TAZOCIN [Suspect]
     Indication: INFECTION
     Dates: start: 20140411, end: 20140416
  2. METFORMIN [Concomitant]
     Dosage: UNK
     Dates: end: 20140414
  3. ONGLYZA [Concomitant]
     Dosage: UNK
  4. TROMBYL [Concomitant]
     Dosage: UNK
  5. CANDESARTAN [Concomitant]
     Dosage: UNK
     Dates: end: 20140414
  6. METOPROLOL [Concomitant]
     Dosage: UNK
  7. BRILIQUE [Concomitant]
     Dosage: 90 MG, UNK
  8. SALURES [Concomitant]
     Dosage: UNK

REACTIONS (1)
  - Lip swelling [Recovered/Resolved]
